FAERS Safety Report 4867593-1 (Version None)
Quarter: 2005Q4

REPORT INFORMATION
  Report Type: 
  Country: None (occurrence: None)
  Receive Date: 20051223
  Receipt Date: 20051223
  Transmission Date: 20060501
  Serious: Yes (Other)
  Sender: FDA-Public Use
  Company Number: None

PATIENT
  Sex: Male
  Weight: 53.0709 kg

DRUGS (10)
  1. ATORVASTATIN 80 MG [Suspect]
     Indication: HYPERLIPIDAEMIA
     Dosage: 80 MG QPM PO
     Route: 048
     Dates: start: 20050330, end: 20050629
  2. ASPIRIN [Concomitant]
  3. CHLORZOXAZONE [Concomitant]
  4. CITALOPRAM HYDROBROMIDE [Concomitant]
  5. DEXTROSE [Concomitant]
  6. DOCUSATE [Concomitant]
  7. GLYBURIDE [Concomitant]
  8. LISINOPRIL AND HYDROCHLOROTHIAZIDE [Concomitant]
  9. METFORMIN [Concomitant]
  10. TRAZODONE [Concomitant]

REACTIONS (1)
  - HEPATITIS [None]
